FAERS Safety Report 7860315-1 (Version None)
Quarter: 2011Q4

REPORT INFORMATION
  Report Type: 
  Country: None (occurrence: None)
  Receive Date: 20111027
  Receipt Date: 20111024
  Transmission Date: 20120403
  Serious: Yes (Other)
  Sender: FDA-Public Use
  Company Number: US-TEVA-306538USA

PATIENT
  Sex: Female

DRUGS (11)
  1. RISEDRONATE SODIUM [Concomitant]
     Dates: start: 19970115
  2. MULTI-VITAMINS [Concomitant]
     Dates: start: 19970101
  3. VITACAL                            /01535001/ [Concomitant]
     Dates: start: 19970101
  4. FOLIC ACID [Concomitant]
     Dates: start: 19900101
  5. ABATACEPT [Suspect]
     Indication: RHEUMATOID ARTHRITIS
     Route: 058
     Dates: start: 20080226
  6. METHOTREXATE [Suspect]
     Dates: start: 20080102
  7. PREDNISONE [Concomitant]
     Dates: start: 20080101
  8. NABUMETONE [Concomitant]
     Dates: start: 20050101
  9. CLONAZEPAM [Concomitant]
     Dates: start: 20010101
  10. PROPRANOLOL [Concomitant]
     Dates: start: 20100725
  11. VALPROATE SODIUM [Concomitant]
     Dates: start: 20010102

REACTIONS (1)
  - SQUAMOUS CELL CARCINOMA [None]
